FAERS Safety Report 6823636-7 (Version None)
Quarter: 2010Q3

REPORT INFORMATION
  Report Type: 
  Country: None (occurrence: None)
  Receive Date: 20100708
  Receipt Date: 20060817
  Transmission Date: 20110219
  Serious: No
  Sender: FDA-Public Use
  Company Number: US-PFIZER INC-2006102767

PATIENT
  Sex: Female
  Weight: 90.72 kg

DRUGS (8)
  1. CHANTIX [Suspect]
     Indication: SMOKING CESSATION THERAPY
     Dates: start: 20060701
  2. WELLBUTRIN [Concomitant]
     Indication: DEPRESSION
  3. PAXIL [Concomitant]
     Indication: DEPRESSION
  4. ALL OTHER THERAPEUTIC PRODUCTS [Concomitant]
     Indication: DIABETES MELLITUS
  5. INSULIN [Concomitant]
  6. REGLAN [Concomitant]
  7. PRANDIN [Concomitant]
  8. PREVACID [Concomitant]

REACTIONS (3)
  - CONSTIPATION [None]
  - DEPRESSION [None]
  - INSOMNIA [None]
